FAERS Safety Report 14443675 (Version 3)
Quarter: 2018Q4

REPORT INFORMATION
  Report Type: Report from Study
  Country: US (occurrence: US)
  Receive Date: 20180125
  Receipt Date: 20181015
  Transmission Date: 20190204
  Serious: No
  Sender: FDA-Public Use
  Company Number: US-AMGEN-USASL2017122180

PATIENT
  Age: 82 Year
  Sex: Male

DRUGS (1)
  1. KYPROLIS [Suspect]
     Active Substance: CARFILZOMIB
     Indication: PLASMA CELL MYELOMA
     Dosage: UNK, 2X/WEEK EVERY OTHER WEEK (2 DAYS/WEEK EVERY OTHER WEEK)
     Route: 065

REACTIONS (3)
  - Off label use [Unknown]
  - Fatigue [Unknown]
  - Malaise [Unknown]
